FAERS Safety Report 10400632 (Version 1)
Quarter: 2014Q3

REPORT INFORMATION
  Report Type: Spontaneous
  Country: US (occurrence: US)
  Receive Date: 20140821
  Receipt Date: 20140821
  Transmission Date: 20150326
  Serious: No
  Sender: FDA-Public Use
  Company Number: US-ASTRAZENECA-2014SE01671

PATIENT
  Age: 79 Year
  Sex: Male
  Weight: 82.1 kg

DRUGS (16)
  1. PUMPKIN SEED OIL EXTRACT [Concomitant]
     Indication: PROSTATIC DISORDER
     Dosage: UNK UNK
  2. VIITAMIN D [Concomitant]
     Indication: PRODUCT USED FOR UNKNOWN INDICATION
  3. BENZONATATE. [Concomitant]
     Active Substance: BENZONATATE
     Indication: COUGH
  4. BENZONATATE. [Concomitant]
     Active Substance: BENZONATATE
     Indication: COUGH
  5. LORATADINE. [Concomitant]
     Active Substance: LORATADINE
     Indication: HYPERSENSITIVITY
  6. SPIRIVA [Concomitant]
     Active Substance: TIOTROPIUM BROMIDE MONOHYDRATE
     Indication: DYSPNOEA
  7. CITALOPAM HYDROBROMIDE [Concomitant]
     Indication: AFFECTIVE DISORDER
  8. SAW PALMETTO [Concomitant]
     Active Substance: SAW PALMETTO
     Indication: PROSTATIC DISORDER
  9. FENASTERIDE [Concomitant]
     Indication: PROSTATIC DISORDER
  10. BRIMONIDINE TARTRATE. [Concomitant]
     Active Substance: BRIMONIDINE TARTRATE
     Indication: INTRAOCULAR PRESSURE TEST
  11. ZINC [Concomitant]
     Active Substance: ZINC\ZINC CHLORIDE
     Indication: PROSTATIC DISORDER
  12. LOSARTAN [Concomitant]
     Active Substance: LOSARTAN
     Indication: RENAL DISORDER
  13. HYDROCHLOROTHIAZIDE. [Concomitant]
     Active Substance: HYDROCHLOROTHIAZIDE
     Indication: BLOOD PRESSURE ABNORMAL
  14. VITAMIN B12 [Concomitant]
     Active Substance: CYANOCOBALAMIN
  15. BENZONATATE. [Concomitant]
     Active Substance: BENZONATATE
     Indication: COUGH
  16. SYMBICORT [Suspect]
     Active Substance: BUDESONIDE\FORMOTEROL FUMARATE DIHYDRATE
     Indication: VITAL CAPACITY DECREASED
     Dosage: 160/4.5, 3 PUFFS BID
     Route: 055
     Dates: start: 201312

REACTIONS (7)
  - Intraocular pressure increased [Unknown]
  - Dizziness [Unknown]
  - Cough [Unknown]
  - Drug ineffective [Unknown]
  - Off label use [Unknown]
  - Dyspnoea [Unknown]
  - Anxiety [Unknown]

NARRATIVE: CASE EVENT DATE: 201312
